FAERS Safety Report 24693141 (Version 5)
Quarter: 2025Q1

REPORT INFORMATION
  Report Type: Report from Study
  Country: CA (occurrence: CA)
  Receive Date: 20241203
  Receipt Date: 20250103
  Transmission Date: 20250408
  Serious: Yes (Death, Hospitalization, Other)
  Sender: GILEAD
  Company Number: CA-GILEAD-2024-0695613

PATIENT
  Age: 78 Year
  Sex: Male

DRUGS (2)
  1. BREXUCABTAGENE AUTOLEUCEL [Suspect]
     Active Substance: BREXUCABTAGENE AUTOLEUCEL
     Indication: Mantle cell lymphoma refractory
     Route: 042
     Dates: start: 20241107, end: 20241107
  2. FENTANYL [Concomitant]
     Active Substance: FENTANYL

REACTIONS (8)
  - Renal impairment [Recovered/Resolved]
  - Pulmonary oedema [Not Recovered/Not Resolved]
  - Death [Fatal]
  - Heart rate increased [Unknown]
  - Endotracheal intubation [Recovered/Resolved]
  - Oxygen therapy [Recovered/Resolved]
  - Chills [Unknown]
  - Pyrexia [Unknown]

NARRATIVE: CASE EVENT DATE: 20241228
